FAERS Safety Report 19392512 (Version 1)
Quarter: 2021Q2

REPORT INFORMATION
  Report Type: Spontaneous
  Country: DE (occurrence: DE)
  Receive Date: 20210608
  Receipt Date: 20210608
  Transmission Date: 20210717
  Serious: Yes (Hospitalization)
  Sender: FDA-Public Use
  Company Number: DE-ELI_LILLY_AND_COMPANY-DE202105013040

PATIENT
  Age: 66 Year
  Sex: Male

DRUGS (3)
  1. METFORMIN HEXAL [Suspect]
     Active Substance: METFORMIN HYDROCHLORIDE
     Indication: PRODUCT USED FOR UNKNOWN INDICATION
     Dosage: 850 MG, 1?0?1?0, TABLETTEN
     Route: 048
  2. LANTUS [Suspect]
     Active Substance: INSULIN GLARGINE
     Indication: PRODUCT USED FOR UNKNOWN INDICATION
     Dosage: 0?0?0?26, FERTIGSPRITZEN (LANTUS 100 EINHEITEN/ML INJEKTIONSLOSUNG IN PATRONE 3ML)
     Route: 058
  3. INSULIN  LISPRO [Suspect]
     Active Substance: INSULIN LISPRO
     Indication: PRODUCT USED FOR UNKNOWN INDICATION
     Dosage: 10?10?12?0, FERTIGSPRITZEN (HUMALOG 100 EINHEITEN/ML INJ.LSG.IN PATRONE 3ML)
     Route: 058

REACTIONS (3)
  - Pain in extremity [Unknown]
  - Peripheral swelling [Unknown]
  - Product prescribing error [Unknown]

NARRATIVE: CASE EVENT DATE: 20200914
